FAERS Safety Report 8218934-9 (Version None)
Quarter: 2012Q1

REPORT INFORMATION
  Report Type: 
  Country: None (occurrence: None)
  Receive Date: 20120319
  Receipt Date: 20120309
  Transmission Date: 20120608
  Serious: Yes (Other)
  Sender: FDA-Public Use
  Company Number: US-NOVOPROD-343046

PATIENT
  Age: 53 Year
  Sex: Female
  Weight: 145.13 kg

DRUGS (24)
  1. PROPRANOLOL [Concomitant]
     Indication: HYPERTENSION
     Dosage: 80 MG, BID
  2. FLEXERIL [Concomitant]
     Indication: PAIN
     Dosage: 10 MG, BID PRN
  3. ASPIRIN [Concomitant]
     Indication: PRODUCT USED FOR UNKNOWN INDICATION
     Dosage: 81 MG, QD
  4. FLONASE [Concomitant]
     Indication: PRODUCT USED FOR UNKNOWN INDICATION
  5. METOCLOPRAMIDE [Concomitant]
     Indication: GASTROOESOPHAGEAL REFLUX DISEASE
     Dosage: 5 MG, QID
  6. VICTOZA [Suspect]
     Indication: TYPE 2 DIABETES MELLITUS
     Dosage: 1.2 MG, QD
     Route: 058
     Dates: start: 20110616, end: 20110630
  7. ALBUTEROL [Concomitant]
     Indication: CHRONIC OBSTRUCTIVE PULMONARY DISEASE
     Dosage: 2 PUFF, QID PRN
     Route: 055
  8. ZETIA [Concomitant]
     Indication: HYPERLIPIDAEMIA
     Dosage: 10 MG, QD
  9. ALLOPURINOL [Concomitant]
     Indication: GOUT
     Dosage: 100 MG, QD
  10. LEVOTHYROXINE SODIUM [Concomitant]
     Indication: HYPOTHYROIDISM
     Dosage: 200 A?G, UNK
  11. LITHIUM CARBONATE [Concomitant]
     Indication: BIPOLAR DISORDER
     Dosage: 300 MG, UNK
  12. BUMEX [Concomitant]
     Indication: HYPERTENSION
     Dosage: 1 MG, QD
  13. LIPITOR [Concomitant]
     Indication: HYPERLIPIDAEMIA
     Dosage: 10 MG, QD
  14. OYSCO [Concomitant]
     Indication: SUPPLEMENTATION THERAPY
     Dosage: 500 PLUS D, 500-200, 1 TAB, BID
  15. ADVAIR DISKUS 100/50 [Concomitant]
     Indication: CHRONIC OBSTRUCTIVE PULMONARY DISEASE
     Dosage: 100/50 INHILATION, BID
     Route: 055
  16. IPRATROPIUM [Concomitant]
     Indication: PRODUCT USED FOR UNKNOWN INDICATION
     Dosage: 0.02% NEB
     Route: 055
  17. FLEXERIL [Concomitant]
     Indication: MUSCLE SPASMS
  18. METFORMIN HYDROCHLORIDE [Concomitant]
     Indication: TYPE 2 DIABETES MELLITUS
     Dosage: 850 MG, TID
  19. DIOVAN [Concomitant]
     Indication: HYPERTENSION
     Dosage: 320 MG, QD
  20. TRAMADOL HCL [Concomitant]
     Indication: PAIN
     Dosage: 100 MG, QD
  21. ACTOS [Concomitant]
     Indication: TYPE 2 DIABETES MELLITUS
     Dosage: 45 MG, QD
  22. KLOR-CON M10 [Concomitant]
     Indication: HYPERTENSION
     Dosage: 10 MEQ, QD
  23. UREA [Concomitant]
     Indication: PRODUCT USED FOR UNKNOWN INDICATION
     Dosage: CREAM 40%, APPLY TO FEET
     Route: 061
  24. OMEPRAZOLE [Concomitant]
     Indication: GASTROOESOPHAGEAL REFLUX DISEASE
     Dosage: 20 MG, QD

REACTIONS (3)
  - ANAPHYLACTIC REACTION [None]
  - DYSPNOEA [None]
  - PHARYNGEAL OEDEMA [None]
